FAERS Safety Report 6475586-6 (Version None)
Quarter: 2009Q4

REPORT INFORMATION
  Report Type: 
  Country: None (occurrence: None)
  Receive Date: 20091204
  Receipt Date: 20091126
  Transmission Date: 20100525
  Serious: Yes (Other)
  Sender: FDA-Public Use
  Company Number: JP-MERCK-0911USA01963

PATIENT
  Age: 75 Year
  Sex: Female
  Weight: 66 kg

DRUGS (4)
  1. PEPCID RPD [Suspect]
     Indication: PROPHYLAXIS AGAINST GASTROINTESTINAL ULCER
     Route: 048
     Dates: start: 20091013, end: 20091021
  2. CEFAMEZIN [Suspect]
     Indication: PNEUMONIA
     Route: 041
     Dates: start: 20091013, end: 20091020
  3. ALEVIATIN [Suspect]
     Indication: ENCEPHALITIS
     Route: 048
     Dates: start: 20090925, end: 20091021
  4. IOMERON-150 [Suspect]
     Route: 042
     Dates: start: 20091013, end: 20091013

REACTIONS (1)
  - STEVENS-JOHNSON SYNDROME [None]
